FAERS Safety Report 21005186 (Version 8)
Quarter: 2023Q2

REPORT INFORMATION
  Report Type: Report from Study
  Country: US (occurrence: US)
  Receive Date: 20220624
  Receipt Date: 20230501
  Transmission Date: 20230722
  Serious: No
  Sender: FDA-Public Use
  Company Number: US-NOVARTISTESTPH-NVSC2022US144496

PATIENT
  Sex: Male

DRUGS (2)
  1. COSENTYX [Suspect]
     Active Substance: SECUKINUMAB
     Indication: Psoriasis
     Dosage: 300 MG, QMO
     Route: 058
  2. COSENTYX [Suspect]
     Active Substance: SECUKINUMAB
     Dosage: 300 MG, QOD
     Route: 058

REACTIONS (6)
  - Psoriasis [Unknown]
  - Dry skin [Recovering/Resolving]
  - Pigmentation disorder [Recovering/Resolving]
  - Skin fissures [Unknown]
  - Skin laceration [Unknown]
  - Drug ineffective [Unknown]
